FAERS Safety Report 20579919 (Version 2)
Quarter: 2022Q1

REPORT INFORMATION
  Report Type: Spontaneous
  Country: FR (occurrence: FR)
  Receive Date: 20220310
  Receipt Date: 20220318
  Transmission Date: 20220423
  Serious: Yes (Disabling, Other)
  Sender: FDA-Public Use
  Company Number: FR-TEVA-2022-FR-2014903

PATIENT
  Age: 97 Year
  Sex: Female

DRUGS (2)
  1. LEVOFLOXACIN [Suspect]
     Active Substance: LEVOFLOXACIN
     Indication: Pneumonia
     Dosage: 1 DOSAGE FORMS DAILY; IN THE EVENING ON 18-FEB-2022
     Route: 065
     Dates: end: 20220220
  2. LEVOFLOXACIN [Suspect]
     Active Substance: LEVOFLOXACIN
     Dosage: 2 DOSAGE FORMS DAILY;  1 DF IN THE MORNING AND IN THE EVENING ON 19 AND 20-FEB-2022
     Route: 065

REACTIONS (6)
  - Gait inability [Unknown]
  - Pain in extremity [Unknown]
  - Balance disorder [Unknown]
  - Haematoma [Not Recovered/Not Resolved]
  - Tendon rupture [Not Recovered/Not Resolved]
  - Tendon injury [Not Recovered/Not Resolved]

NARRATIVE: CASE EVENT DATE: 20220201
